FAERS Safety Report 24638862 (Version 3)
Quarter: 2025Q3

REPORT INFORMATION
  Report Type: Report from Study
  Country: US (occurrence: US)
  Receive Date: 20241119
  Receipt Date: 20250803
  Transmission Date: 20251020
  Serious: Yes (Hospitalization, Other)
  Sender: ALEXION PHARMACEUTICALS
  Company Number: US-AstraZeneca-CH-00745264A

PATIENT
  Sex: Male

DRUGS (1)
  1. SOLIRIS [Suspect]
     Active Substance: ECULIZUMAB
     Indication: Atypical haemolytic uraemic syndrome

REACTIONS (6)
  - Escherichia sepsis [Recovered/Resolved]
  - Peripheral swelling [Unknown]
  - Decreased immune responsiveness [Unknown]
  - Nausea [Unknown]
  - Rhinorrhoea [Unknown]
  - Hypertension [Unknown]
